FAERS Safety Report 9922432 (Version 2)
Quarter: 2014Q1

REPORT INFORMATION
  Report Type: Spontaneous
  Country: US (occurrence: US)
  Receive Date: 20140225
  Receipt Date: 20140228
  Transmission Date: 20141002
  Serious: Yes (Other)
  Sender: FDA-Public Use
  Company Number: CHPA2014US002936

PATIENT
  Age: 63 Year
  Sex: Female

DRUGS (8)
  1. EXCEDRIN MIGRAINE [Suspect]
     Indication: MIGRAINE
     Dosage: 1 DF, PRN
     Route: 048
  2. EXCEDRIN MIGRAINE [Suspect]
     Indication: MYALGIA
  3. EXCEDRIN MIGRAINE [Suspect]
     Indication: OFF LABEL USE
  4. EXCEDRIN SINUS HEADACHE [Suspect]
     Indication: MIGRAINE
  5. EXCEDRIN SINUS HEADACHE [Suspect]
     Indication: OFF LABEL USE
  6. EXCEDRIN EXTRA STRENGTH [Suspect]
     Indication: MIGRAINE
  7. EXCEDRIN EXTRA STRENGTH [Suspect]
     Indication: OFF LABEL USE
  8. BOTULINUM TOXIN [Concomitant]
     Indication: MIGRAINE

REACTIONS (2)
  - Fibromyalgia [Unknown]
  - Therapeutic response unexpected [Unknown]
